FAERS Safety Report 24955513 (Version 1)
Quarter: 2025Q1

REPORT INFORMATION
  Report Type: Spontaneous
  Country: US (occurrence: US)
  Receive Date: 20250211
  Receipt Date: 20250211
  Transmission Date: 20250409
  Serious: Yes (Hospitalization)
  Sender: VISTAPHARM
  Company Number: US-VISTAPHARM-2025-US-006403

PATIENT
  Age: 80 Year
  Sex: Female

DRUGS (2)
  1. SUCRALFATE [Suspect]
     Active Substance: SUCRALFATE
     Indication: Gastrointestinal disorder
     Route: 048
     Dates: start: 202302
  2. UNSPECIFIED INGREDIENT [Concomitant]
     Active Substance: UNSPECIFIED INGREDIENT

REACTIONS (2)
  - Haematochezia [Recovered/Resolved]
  - Colitis [Recovered/Resolved]
